FAERS Safety Report 25486814 (Version 1)
Quarter: 2025Q2

REPORT INFORMATION
  Report Type: Spontaneous
  Country: AU (occurrence: AU)
  Receive Date: 20250627
  Receipt Date: 20250627
  Transmission Date: 20250716
  Serious: Yes (Death, Hospitalization, Other)
  Sender: JOHNSON AND JOHNSON
  Company Number: AU-JNJFOC-20250633699

PATIENT
  Age: 47 Year
  Sex: Female

DRUGS (8)
  1. HALOPERIDOL [Suspect]
     Active Substance: HALOPERIDOL
     Indication: Agitation
     Route: 042
     Dates: start: 202108
  2. HALOPERIDOL [Suspect]
     Active Substance: HALOPERIDOL
     Indication: Psychotic symptom
  3. DIAZEPAM [Suspect]
     Active Substance: DIAZEPAM
     Indication: Schizoaffective disorder
     Route: 065
     Dates: start: 202108
  4. MIDAZOLAM [Suspect]
     Active Substance: MIDAZOLAM
     Indication: Schizoaffective disorder
     Route: 065
     Dates: start: 202108
  5. OLANZAPINE [Suspect]
     Active Substance: OLANZAPINE
     Indication: Schizoaffective disorder
     Route: 065
     Dates: start: 202108
  6. KETAMINE [Suspect]
     Active Substance: KETAMINE
     Indication: Schizoaffective disorder
     Route: 065
  7. PROPOFOL [Suspect]
     Active Substance: PROPOFOL
     Indication: Schizoaffective disorder
     Route: 065
  8. PANADOL [Concomitant]
     Active Substance: ACETAMINOPHEN
     Indication: Schizoaffective disorder
     Route: 065
     Dates: start: 202108

REACTIONS (6)
  - Acute respiratory failure [Fatal]
  - Depressed level of consciousness [Unknown]
  - Agitation [Unknown]
  - Somnolence [Unknown]
  - Hypomania [Unknown]
  - Off label use [Unknown]

NARRATIVE: CASE EVENT DATE: 20210801
